FAERS Safety Report 20170699 (Version 1)
Quarter: 2021Q4

REPORT INFORMATION
  Report Type: Spontaneous
  Country: US (occurrence: None)
  Receive Date: 20211210
  Receipt Date: 20211210
  Transmission Date: 20220303
  Serious: No
  Sender: FDA-Public Use
  Company Number: None

PATIENT
  Age: 61 Year
  Sex: Male

DRUGS (1)
  1. ERGOCALCIFEROL [Suspect]
     Active Substance: ERGOCALCIFEROL
     Indication: Vitamin D deficiency
     Dates: start: 20210830, end: 20210920

REACTIONS (3)
  - Chest pain [None]
  - Hyperhidrosis [None]
  - Therapy interrupted [None]

NARRATIVE: CASE EVENT DATE: 20210920
